FAERS Safety Report 7931525-X (Version None)
Quarter: 2011Q4

REPORT INFORMATION
  Report Type: 
  Country: None (occurrence: None)
  Receive Date: 20111121
  Receipt Date: 20111121
  Transmission Date: 20120403
  Serious: Yes (Other)
  Sender: FDA-Public Use
  Company Number: None

PATIENT
  Age: 27 Year
  Sex: Female
  Weight: 72.574 kg

DRUGS (1)
  1. MIRENA [Suspect]
     Indication: CONTRACEPTION
     Route: 015

REACTIONS (6)
  - HEADACHE [None]
  - ASTHENIA [None]
  - BACK PAIN [None]
  - FATIGUE [None]
  - MUSCLE SPASMS [None]
  - MENTAL DISORDER [None]
